FAERS Safety Report 16748183 (Version 2)
Quarter: 2020Q1

REPORT INFORMATION
  Report Type: Report from Study
  Country: MX (occurrence: MX)
  Receive Date: 20190827
  Receipt Date: 20200207
  Transmission Date: 20200409
  Serious: Yes (Other)
  Sender: FDA-Public Use
  Company Number: MX-NOVOPROD-681239

PATIENT
  Sex: Female
  Weight: 99.8 kg

DRUGS (1)
  1. SAXENDA [Suspect]
     Active Substance: LIRAGLUTIDE
     Indication: OBESITY
     Dosage: 1.80 MG, QD
     Route: 058
     Dates: start: 201908

REACTIONS (6)
  - Depression [Not Recovered/Not Resolved]
  - Abdominal pain upper [Recovering/Resolving]
  - Dry mouth [Not Recovered/Not Resolved]
  - Palpitations [Unknown]
  - Diarrhoea [Recovered/Resolved]
  - Fatigue [Not Recovered/Not Resolved]

NARRATIVE: CASE EVENT DATE: 201908
